FAERS Safety Report 5924968-7 (Version None)
Quarter: 2008Q4

REPORT INFORMATION
  Report Type: 
  Country: None (occurrence: None)
  Receive Date: 20081021
  Receipt Date: 20081017
  Transmission Date: 20090506
  Serious: Yes (Hospitalization)
  Sender: FDA-Public Use
  Company Number: US-BRISTOL-MYERS SQUIBB COMPANY-13944517

PATIENT
  Age: 63 Year
  Sex: Female
  Weight: 82 kg

DRUGS (9)
  1. ABILIFY [Suspect]
     Dates: end: 20070101
  2. FUROSEMIDE [Concomitant]
  3. OXYBUTYNIN [Concomitant]
  4. METOPROLOL TARTRATE [Concomitant]
  5. ELAVIL [Concomitant]
  6. FLEXERIL [Concomitant]
  7. ATARAX [Concomitant]
  8. LIPITOR [Concomitant]
  9. NEURONTIN [Concomitant]

REACTIONS (7)
  - ARTHRALGIA [None]
  - BACK PAIN [None]
  - DIPLOPIA [None]
  - DYSKINESIA [None]
  - FIBROMYALGIA [None]
  - TEETH BRITTLE [None]
  - TOOTH LOSS [None]
